FAERS Safety Report 12732326 (Version 1)
Quarter: 2016Q3

REPORT INFORMATION
  Report Type: Spontaneous
  Country: US (occurrence: US)
  Receive Date: 20160912
  Receipt Date: 20160912
  Transmission Date: 20161109
  Serious: Yes (Hospitalization)
  Sender: FDA-Public Use
  Company Number: US-JNJFOC-20160700191

PATIENT
  Age: 60 Year
  Sex: Female
  Weight: 62.14 kg

DRUGS (2)
  1. XARELTO [Suspect]
     Active Substance: RIVAROXABAN
     Indication: PULMONARY EMBOLISM
     Dosage: DOSE 10MG, 15MG AND 20MG
     Route: 048
     Dates: start: 20150806, end: 20151117
  2. XARELTO [Suspect]
     Active Substance: RIVAROXABAN
     Indication: THROMBOSIS PROPHYLAXIS
     Dosage: DOSE 10MG, 15MG AND 20MG
     Route: 048
     Dates: start: 20150806, end: 20151117

REACTIONS (2)
  - Subdural haematoma [Recovering/Resolving]
  - Haemorrhagic stroke [Unknown]

NARRATIVE: CASE EVENT DATE: 20151029
